FAERS Safety Report 16824171 (Version 2)
Quarter: 2019Q4

REPORT INFORMATION
  Report Type: Report from Study
  Country: CA (occurrence: CA)
  Receive Date: 20190918
  Receipt Date: 20191118
  Transmission Date: 20200122
  Serious: Yes (Other)
  Sender: FDA-Public Use
  Company Number: CA-JNJFOC-20181017616

PATIENT
  Age: 44 Year
  Sex: Female
  Weight: 60.7 kg

DRUGS (2)
  1. REMICADE [Suspect]
     Active Substance: INFLIXIMAB
     Route: 042
     Dates: start: 20130424
  2. REMICADE [Suspect]
     Active Substance: INFLIXIMAB
     Indication: COLITIS ULCERATIVE
     Dosage: STRENGTH = 100 MG
     Route: 042
     Dates: start: 20130424

REACTIONS (5)
  - Musculoskeletal chest pain [Recovering/Resolving]
  - Colitis ulcerative [Not Recovered/Not Resolved]
  - Nasal disorder [Not Recovered/Not Resolved]
  - Rash [Recovering/Resolving]
  - Skin infection [Unknown]

NARRATIVE: CASE EVENT DATE: 2018
